FAERS Safety Report 14826970 (Version 1)
Quarter: 2018Q2

REPORT INFORMATION
  Report Type: Report from Study
  Country: IT (occurrence: IT)
  Receive Date: 20180430
  Receipt Date: 20180430
  Transmission Date: 20180711
  Serious: Yes (Other)
  Sender: FDA-Public Use
  Company Number: IT-ASPEN-GLO2018IT004050

PATIENT
  Age: 19 Year
  Sex: Female

DRUGS (27)
  1. DEXAMETHASONE. [Suspect]
     Active Substance: DEXAMETHASONE
     Dosage: 5 MILLIGRAM/SQ. METER BID CYCLIC; DAY 1-5, 15-19
     Route: 042
  2. METHOTREXATE. [Suspect]
     Active Substance: METHOTREXATE
     Indication: ACUTE LYMPHOCYTIC LEUKAEMIA
     Dosage: DOSE: 5000 MILLIGRAM/SQ. METER CYCLIC
     Route: 042
  3. BLINATUMOMAB [Suspect]
     Active Substance: BLINATUMOMAB
     Indication: ACUTE LYMPHOCYTIC LEUKAEMIA
     Dosage: 1 UNK
     Route: 065
  4. DEXAMETHASONE. [Suspect]
     Active Substance: DEXAMETHASONE
     Indication: ACUTE LYMPHOCYTIC LEUKAEMIA
     Dosage: 5 MILLIGRAM/SQ. METER CYCLIC; DAY 1-5 (CYCLE 2);
     Route: 042
  5. LENOGRASTIM [Suspect]
     Active Substance: LENOGRASTIM
     Indication: ACUTE LYMPHOCYTIC LEUKAEMIA
     Dosage: DOSE: 5 MICROGRAM/KILOGRAMFREQUENCY: CYCLICAL C3 QD
     Route: 058
  6. FILGRASTIM [Suspect]
     Active Substance: FILGRASTIM
     Dosage: (CYCLE 7), 8 TO HARVEST/ANC GREATER THAN  UNKNOWN 1.0;
     Route: 058
  7. IDARUBICIN [Suspect]
     Active Substance: IDARUBICIN
     Indication: ACUTE LYMPHOCYTIC LEUKAEMIA
     Dosage: CYCLIC; DAY 1,2 (CYCLE1 AND 2)
     Route: 042
  8. VINCRISTINE SULFATE. [Suspect]
     Active Substance: VINCRISTINE SULFATE
     Indication: ACUTE LYMPHOCYTIC LEUKAEMIA
     Dosage: 2 MG MAX, INFUSION TIME: PUSH
     Route: 042
  9. LENOGRASTIM [Suspect]
     Active Substance: LENOGRASTIM
     Dosage: DOSE: 5 MICROGRAM/KILOGRAM, 5 TO ANC } 1.0;
     Route: 058
  10. CYCLOPHOSPHAMIDE. [Suspect]
     Active Substance: CYCLOPHOSPHAMIDE
     Indication: ACUTE LYMPHOCYTIC LEUKAEMIA
     Dosage: 1000 MILLIGRAM/SQ. METERCYCLIC CYCLE 2
     Route: 042
  11. CYCLOPHOSPHAMIDE. [Suspect]
     Active Substance: CYCLOPHOSPHAMIDE
     Dosage: 300 MILLIGRAM/SQ. METER, QD, CYCLIC, DAY -3 TO-1
     Route: 042
  12. LENOGRASTIM [Suspect]
     Active Substance: LENOGRASTIM
     Dosage: DOSE: 10 MICROGRAM/SQ. METER,FREQUENCY: CYCLIC C7, 8 TO  UNKNOWN HARVEST/ANC GREATER THAN 1.0;
     Route: 058
  13. FILGRASTIM [Suspect]
     Active Substance: FILGRASTIM
     Dosage: DOSE: 5 MICROGRAM/KILOGRAMFREQUENCY :QD CYCLIC, ANC{0.5 TO }1.0 (CYCLE 2) ; CYCLICAL
     Route: 058
  14. CYTARABINE. [Suspect]
     Active Substance: CYTARABINE
     Indication: ACUTE LYMPHOCYTIC LEUKAEMIA
     Dosage: DOSE:75 MILLIGRAM/SQ. METER, QD,CYCLIC (CYCLE 2);DAY 2-5, 9-12,
     Route: 058
  15. FLUDARABINE [Suspect]
     Active Substance: FLUDARABINE PHOSPHATE
     Indication: ACUTE LYMPHOCYTIC LEUKAEMIA
     Dosage: FREQUENCY:DAY 3-4-5 ; CYCLICAL
     Route: 065
  16. DEXAMETHASONE. [Suspect]
     Active Substance: DEXAMETHASONE
     Dosage: 5 MILLIGRAM/SQ. METER: CYCLIC; DAY 1-5 (CYCLE 2);BID
     Route: 042
  17. FILGRASTIM [Suspect]
     Active Substance: FILGRASTIM
     Dosage: DOSE: 5 MICROGRAM/KILOGRAMFREQUENCY :QD CYCLIC, 5 TO ANC }1.0
     Route: 058
  18. CYTARABINE. [Suspect]
     Active Substance: CYTARABINE
     Dosage: DOSE:75 MILLIGRAM/SQ. METER, QD,CYCLIC (CYCLE 2);
     Route: 058
  19. PREDNISONE. [Suspect]
     Active Substance: PREDNISONE
     Indication: ACUTE LYMPHOCYTIC LEUKAEMIA
     Dosage: 20 MILLIGRAM/SQ. METER: BID CYCLIC
     Route: 048
  20. FOLINIC ACID [Suspect]
     Active Substance: LEUCOVORIN
     Indication: ACUTE LYMPHOCYTIC LEUKAEMIA
     Dosage: UNK
     Route: 065
  21. INOTUZUMAB OZOGAMICIN [Concomitant]
     Active Substance: INOTUZUMAB OZOGAMICIN
     Indication: PRODUCT USED FOR UNKNOWN INDICATION
     Dosage: UNK
     Route: 065
  22. CYTARABINE. [Suspect]
     Active Substance: CYTARABINE
     Dosage: DOSE:2000 MILLIGRAM/SQ. METER,CYCLIC, CYCLE 7
     Route: 042
  23. THIOTEPA. [Suspect]
     Active Substance: THIOTEPA
     Indication: ACUTE LYMPHOCYTIC LEUKAEMIA
     Dosage: 1 UNK DAY1-2 ; CYCLICAL
     Route: 065
  24. BUSULFAN. [Suspect]
     Active Substance: BUSULFAN
     Indication: ACUTE LYMPHOCYTIC LEUKAEMIA
     Dosage: UNK
     Route: 042
  25. MERCAPTOPURINE. [Suspect]
     Active Substance: MERCAPTOPURINE
     Indication: ACUTE LYMPHOCYTIC LEUKAEMIA
     Dosage: 60 MILLIGRAM/SQ. METER, QD CYCLIC, DAY 1-14
     Route: 048
  26. LENOGRASTIM [Suspect]
     Active Substance: LENOGRASTIM
     Dosage: DOSE: 5 MICROGRAM/KILOGRAM,CYCLIC, ANC{0.5 TO }1.0 FREQUENCY: CYCLIC C7
     Route: 058
  27. FILGRASTIM [Suspect]
     Active Substance: FILGRASTIM
     Indication: PRODUCT USED FOR UNKNOWN INDICATION
     Dosage: DOSE: 5 MICROGRAM/KILOGRAMFREQUENCY :QD CYCLIC CYCLE 3
     Route: 058

REACTIONS (3)
  - Neoplasm recurrence [Unknown]
  - Neurotoxicity [Recovered/Resolved]
  - Seizure [Recovered/Resolved]
